FAERS Safety Report 13952161 (Version 2)
Quarter: 2020Q2

REPORT INFORMATION
  Report Type: Spontaneous
  Country: US (occurrence: US)
  Receive Date: 20170911
  Receipt Date: 20200626
  Transmission Date: 20200713
  Serious: No
  Sender: FDA-Public Use
  Company Number: US-EMD SERONO-8180022

PATIENT
  Age: 41 Year
  Sex: Female

DRUGS (3)
  1. REBIF [Suspect]
     Active Substance: INTERFERON BETA-1A
     Route: 058
  2. REBIF [Suspect]
     Active Substance: INTERFERON BETA-1A
     Indication: MULTIPLE SCLEROSIS
     Route: 058
     Dates: start: 20111027, end: 20161128
  3. REBIF [Suspect]
     Active Substance: INTERFERON BETA-1A
     Route: 058
     Dates: start: 20170811

REACTIONS (6)
  - Feeling abnormal [Unknown]
  - Paraesthesia [Unknown]
  - Influenza like illness [Unknown]
  - Injection site erythema [Recovering/Resolving]
  - Back pain [Not Recovered/Not Resolved]
  - Injection site indentation [Unknown]

NARRATIVE: CASE EVENT DATE: 201611
